FAERS Safety Report 6533938-X (Version None)
Quarter: 2010Q1

REPORT INFORMATION
  Report Type: 
  Country: None (occurrence: None)
  Receive Date: 20100112
  Receipt Date: 20091230
  Transmission Date: 20100710
  Serious: Yes (Hospitalization)
  Sender: FDA-Public Use
  Company Number: GB-RANBAXY-2009RR-30298

PATIENT
  Sex: Female

DRUGS (17)
  1. AMITRIPTYLINE HCL [Suspect]
     Dosage: 25 MG, QD
     Route: 064
  2. FLUOXETINE [Suspect]
     Route: 064
  3. GABAPENTIN [Suspect]
     Route: 064
  4. MORPHINE SULPHATE [Suspect]
     Dosage: 15 MG, UNK
     Route: 064
  5. TRAMADOL HCL [Suspect]
     Dosage: 100 MG, QID
     Route: 064
  6. TRIFLUOPERAZINE [Suspect]
     Route: 064
  7. HEPARIN [Concomitant]
     Route: 064
  8. IMMUNE GLOBULIN INTRAVENOUS (HUMAN) [Concomitant]
     Dosage: 42 G, QD
     Route: 064
  9. ISOFLURANE [Concomitant]
     Route: 064
  10. METHYLPREDNISOLONE [Concomitant]
     Dosage: 1 G, QD
     Route: 064
  11. NITROUS OXIDE [Concomitant]
     Route: 064
  12. PARACETAMOL [Concomitant]
     Dosage: 1 G, QID
     Route: 064
  13. RANITIDINE [Concomitant]
     Dosage: 150 MG, UNK
     Route: 064
  14. ROCURONIUM BROMIDE [Concomitant]
     Dosage: 60 MG, UNK
     Route: 064
  15. SODIUM CITRATE [Concomitant]
     Dosage: 30 MG, QD
     Route: 064
  16. THIOPENTAL SODIUM [Concomitant]
     Dosage: 450 MG, UNK
     Route: 064
  17. VITAMIN B-12 [Concomitant]
     Dosage: 1 MG, UNK
     Route: 064

REACTIONS (3)
  - APNOEA [None]
  - DRUG EXPOSURE DURING PREGNANCY [None]
  - DRUG WITHDRAWAL SYNDROME [None]
